FAERS Safety Report 10513962 (Version 4)
Quarter: 2015Q2

REPORT INFORMATION
  Report Type: Report from Study
  Country: US (occurrence: US)
  Receive Date: 20141013
  Receipt Date: 20150501
  Transmission Date: 20150821
  Serious: Yes (Disabling, Other)
  Sender: FDA-Public Use
  Company Number: US-SA-2014SA138403

PATIENT
  Age: 61 Year
  Sex: Female

DRUGS (7)
  1. DOCUSATE SODIUM. [Concomitant]
     Active Substance: DOCUSATE SODIUM
     Indication: ABNORMAL FAECES
     Route: 065
     Dates: start: 2012
  2. XANTOFYL [Concomitant]
     Indication: EYE DISORDER
     Route: 065
  3. ECHINACEA SPP. [Concomitant]
  4. AUBAGIO [Suspect]
     Active Substance: TERIFLUNOMIDE
     Indication: MULTIPLE SCLEROSIS
     Route: 048
     Dates: start: 20130627
  5. FLAXSEED [Concomitant]
     Active Substance: FLAX SEED
     Indication: ABNORMAL FAECES
     Route: 065
  6. VITAMIN C [Concomitant]
     Active Substance: ASCORBIC ACID
  7. CYANOCOBALAMIN. [Concomitant]
     Active Substance: CYANOCOBALAMIN
     Indication: BLOOD IRON
     Route: 065

REACTIONS (5)
  - Fall [Unknown]
  - Walking aid user [Unknown]
  - Disability [Unknown]
  - Blood potassium increased [Recovering/Resolving]
  - Fatigue [Not Recovered/Not Resolved]

NARRATIVE: CASE EVENT DATE: 201409
